FAERS Safety Report 8935112 (Version 5)
Quarter: 2014Q3

REPORT INFORMATION
  Report Type: Spontaneous
  Country: CN (occurrence: CN)
  Receive Date: 20121129
  Receipt Date: 20140821
  Transmission Date: 20150326
  Serious: Yes (Death, Life-Threatening)
  Sender: FDA-Public Use
  Company Number: CN-NAPPMUNDI-GBR-2012-0012211

PATIENT
  Age: 77 Year
  Sex: Female

DRUGS (30)
  1. CHYMOTRYPSIN [Concomitant]
     Active Substance: CHYMOTRYPSIN
     Dosage: 4000 UNIT, Q12H
     Route: 055
     Dates: start: 20121125
  2. AMMONIA. [Concomitant]
     Active Substance: AMMONIA
     Dosage: UNK
     Dates: start: 20121107
  3. AMINOPYRINE [Concomitant]
     Active Substance: AMINOPYRINE
     Dosage: 0.1 GRAM, UNK
  4. FAT EMULSIONS [Concomitant]
     Dosage: 250 ML, QID
     Dates: start: 20121108, end: 20121111
  5. CEFOPERAZONE [Concomitant]
     Active Substance: CEFOPERAZONE
     Dosage: UNK UNK, Q12H
     Route: 042
     Dates: start: 20121124
  6. AMBROXOL [Concomitant]
     Active Substance: AMBROXOL
     Dosage: 15 MG, Q12H
     Route: 055
     Dates: start: 20121125
  7. FUROSEMIDE. [Concomitant]
     Active Substance: FUROSEMIDE
     Dosage: UNK
     Dates: start: 20121107
  8. DIPHENHYDRAMINE [Concomitant]
     Active Substance: DIPHENHYDRAMINE
     Dosage: UNK
     Dates: start: 20121107
  9. GENTAMICIN [Concomitant]
     Active Substance: GENTAMICIN
     Dosage: 80000 UNIT, Q12H
     Route: 055
     Dates: start: 20121125
  10. ANTIPYRINE [Concomitant]
     Active Substance: ANTIPYRINE
     Dosage: 40 MG, UNK
  11. BARBITAL [Concomitant]
     Active Substance: BARBITAL
     Dosage: 18 MG, UNK
  12. OXYCODONE HCL PR TABLET 10 MG [Suspect]
     Active Substance: OXYCODONE HYDROCHLORIDE
     Dosage: UNK
  13. POTASSIUM CHLORIDE. [Concomitant]
     Active Substance: POTASSIUM CHLORIDE
     Dosage: 10 ML, QID
     Route: 042
     Dates: start: 20121107, end: 20121111
  14. DEXAMETHASONE. [Concomitant]
     Active Substance: DEXAMETHASONE
     Dosage: 5 MG, QID
     Dates: start: 20121108, end: 20121110
  15. INSULIN                            /00646001/ [Concomitant]
     Active Substance: INSULIN NOS
     Dosage: 8 UNIT, QID
  16. CITICOLINE [Concomitant]
     Active Substance: CITICOLINE
     Dosage: 0.5 GRAM, QID
     Dates: start: 20121115
  17. CEFUROXIME. [Concomitant]
     Active Substance: CEFUROXIME
     Dosage: 1.5 GRAM, Q12H
     Dates: start: 20121118, end: 20121122
  18. SULBACTAM SODIUM [Concomitant]
     Active Substance: SULBACTAM SODIUM
     Dosage: 1 GRAM, Q12H
     Dates: start: 20121124
  19. CIMETIDINE [Concomitant]
     Active Substance: CIMETIDINE
     Dosage: 0.4 GRAM, QID
     Dates: start: 20121110, end: 20121112
  20. LEVOFLOXACIN [Concomitant]
     Active Substance: LEVOFLOXACIN
     Dosage: 0.3 GRAM, QID
     Dates: start: 20121111, end: 20121112
  21. AMBROXOL [Concomitant]
     Active Substance: AMBROXOL
     Dosage: 30 MG, QID
     Dates: start: 20121126
  22. DESLANOSIDE [Concomitant]
     Active Substance: DESLANOSIDE
     Dosage: UNK
     Dates: start: 20121111
  23. OXYCODONE HCL PR TABLET 10 MG [Suspect]
     Active Substance: OXYCODONE HYDROCHLORIDE
     Indication: PRODUCT USED FOR UNKNOWN INDICATION
     Dosage: 10 MG, SINGLE
     Route: 048
     Dates: start: 20121110
  24. METOCLOPRAMIDE. [Concomitant]
     Active Substance: METOCLOPRAMIDE
     Dosage: UNK
     Dates: start: 20121107
  25. MORPHINE [Suspect]
     Active Substance: MORPHINE
     Indication: PRODUCT USED FOR UNKNOWN INDICATION
     Dosage: UNK
     Route: 042
     Dates: start: 20121111
  26. VITAMIN B-COMPLEX WITH VITAMIN C [Concomitant]
     Dosage: 2 GRAM, QID
     Dates: start: 20121107, end: 20121111
  27. AMINO ACID [Concomitant]
     Dosage: 250 ML, QID
     Route: 042
     Dates: start: 20121108, end: 20121109
  28. MANNITOL. [Concomitant]
     Active Substance: MANNITOL
     Dosage: UNK
     Dates: start: 20121111
  29. VITAMIN B-COMPLEX WITH VITAMIN C [Concomitant]
     Dosage: UNK
     Dates: start: 20121112, end: 20121112
  30. SODIUM OZAGREL [Concomitant]
     Dosage: 80 MG, QID
     Route: 042

REACTIONS (3)
  - Pruritus [Fatal]
  - Cerebral infarction [Fatal]
  - Lip swelling [Fatal]

NARRATIVE: CASE EVENT DATE: 20121110
